FAERS Safety Report 5347449-0 (Version None)
Quarter: 2007Q2

REPORT INFORMATION
  Report Type: 
  Country: None (occurrence: None)
  Receive Date: 20070606
  Receipt Date: 20070530
  Transmission Date: 20071010
  Serious: Yes (Hospitalization)
  Sender: FDA-Public Use
  Company Number: KR-BAYER-200713021GDS

PATIENT
  Age: 56 Year
  Sex: Male
  Weight: 62 kg

DRUGS (3)
  1. SORAFENIB [Suspect]
     Indication: RENAL CELL CARCINOMA STAGE UNSPECIFIED
     Route: 048
     Dates: start: 20070102, end: 20070123
  2. SORAFENIB [Suspect]
     Route: 048
     Dates: start: 20070201, end: 20070305
  3. SORAFENIB [Suspect]
     Route: 048
     Dates: start: 20070306, end: 20070528

REACTIONS (1)
  - HEPATITIS [None]
